FAERS Safety Report 12853100 (Version 1)
Quarter: 2016Q4

REPORT INFORMATION
  Report Type: Spontaneous
  Country: US (occurrence: US)
  Receive Date: 20161017
  Receipt Date: 20161017
  Transmission Date: 20170207
  Serious: Yes (Life-Threatening, Hospitalization, Disabling)
  Sender: FDA-Public Use
  Company Number: None

PATIENT
  Age: 31 Year
  Sex: Female
  Weight: 86.18 kg

DRUGS (1)
  1. MIRENA [Suspect]
     Active Substance: LEVONORGESTREL
     Dates: start: 20071220, end: 20110320

REACTIONS (4)
  - Hair growth abnormal [None]
  - Weight increased [None]
  - Depression [None]
  - Seizure [None]

NARRATIVE: CASE EVENT DATE: 20110330
